FAERS Safety Report 6232197-5 (Version None)
Quarter: 2009Q2

REPORT INFORMATION
  Report Type: 
  Country: None (occurrence: None)
  Receive Date: 20090617
  Receipt Date: 20090610
  Transmission Date: 20091009
  Serious: Yes (Hospitalization)
  Sender: FDA-Public Use
  Company Number: JP-BRISTOL-MYERS SQUIBB COMPANY-14664452

PATIENT
  Age: 79 Year
  Sex: Male
  Weight: 50 kg

DRUGS (9)
  1. ERBITUX [Suspect]
     Indication: COLON CANCER
     Dosage: 1ST INF ON 09FEB09; 7TH INF ON 30MAR09 DOSE REDUCED TO 380MG
     Route: 042
     Dates: start: 20090209, end: 20090209
  2. IRINOTECAN HCL [Concomitant]
     Indication: COLON CANCER
     Dosage: 1ST INF ON 09FEB09
     Route: 042
     Dates: start: 20090209, end: 20090323
  3. DIPHENHYDRAMINE HCL [Concomitant]
     Indication: PREMEDICATION
     Dosage: TABS
     Route: 048
     Dates: start: 20090209, end: 20090330
  4. DECADRON [Concomitant]
     Indication: PREMEDICATION
     Route: 042
     Dates: start: 20090209, end: 20090330
  5. GRANISETRON HCL [Concomitant]
     Indication: ANTIEMETIC SUPPORTIVE CARE
     Route: 042
     Dates: start: 20090209, end: 20090303
  6. PARIET [Concomitant]
     Indication: PROPHYLAXIS AGAINST GASTROINTESTINAL ULCER
     Dosage: TABS
     Route: 048
  7. NIFEDIPINE [Concomitant]
     Indication: HYPERTENSION
     Dosage: TABS
     Route: 048
  8. MIGLITOL [Concomitant]
     Indication: DIABETES MELLITUS
     Dosage: TABS
     Route: 048
  9. AMARYL [Concomitant]
     Indication: DIABETES MELLITUS
     Dosage: TABS
     Route: 048

REACTIONS (4)
  - HYPOALBUMINAEMIA [None]
  - MALNUTRITION [None]
  - OEDEMA [None]
  - OEDEMA PERIPHERAL [None]
